FAERS Safety Report 18974225 (Version 7)
Quarter: 2021Q2

REPORT INFORMATION
  Report Type: Report from Study
  Country: None (occurrence: ES)
  Receive Date: 20210305
  Receipt Date: 20210414
  Transmission Date: 20210717
  Serious: Yes (Death, Hospitalization, Other)
  Sender: FDA-Public Use
  Company Number: ES-ABBVIE-21K-144-3798947-00

PATIENT
  Age: 68 Year
  Sex: Female
  Weight: 58 kg

DRUGS (2)
  1. DUODOPA [Suspect]
     Active Substance: CARBIDOPA\LEVODOPA
     Indication: PARKINSON^S DISEASE
     Dosage: CD 3.3 ML/H, CONTINUOUS DOSE 2.8 ML/H, MD 7.10,12 HOURS, 9?21H 21?9H?20 MG/ML 5 MG/ML
     Route: 050
     Dates: start: 20190606, end: 2021
  2. DUODOPA [Suspect]
     Active Substance: CARBIDOPA\LEVODOPA

REACTIONS (7)
  - Atelectasis [Fatal]
  - Aspiration [Fatal]
  - Stoma site discharge [Fatal]
  - General physical health deterioration [Unknown]
  - Oxygen saturation decreased [Fatal]
  - Pyrexia [Fatal]
  - Infection [Unknown]

NARRATIVE: CASE EVENT DATE: 2021
